FAERS Safety Report 25525619 (Version 2)
Quarter: 2025Q3

REPORT INFORMATION
  Report Type: Spontaneous
  Country: EU (occurrence: EU)
  Receive Date: 20250707
  Receipt Date: 20250723
  Transmission Date: 20251021
  Serious: Yes (Death)
  Sender: PFIZER
  Company Number: None

PATIENT
  Age: 78 Year
  Sex: Male

DRUGS (10)
  1. RUXIENCE [Suspect]
     Active Substance: RITUXIMAB-PVVR
     Indication: B-cell lymphoma
     Route: 058
     Dates: start: 20240711
  2. VINCRISTINE SULFATE [Suspect]
     Active Substance: VINCRISTINE SULFATE
     Indication: B-cell lymphoma
     Route: 042
     Dates: start: 20240711
  3. DOXORUBICIN HYDROCHLORIDE [Suspect]
     Active Substance: DOXORUBICIN HYDROCHLORIDE
     Indication: B-cell lymphoma
     Route: 042
     Dates: start: 20240711
  4. CYCLOPHOSPHAMIDE [Suspect]
     Active Substance: CYCLOPHOSPHAMIDE
     Indication: B-cell lymphoma
     Route: 042
     Dates: start: 20240711
  5. PREDNISONE [Suspect]
     Active Substance: PREDNISONE
     Indication: B-cell lymphoma
     Route: 042
     Dates: start: 20240711
  6. BACTRIM [Concomitant]
     Active Substance: SULFAMETHOXAZOLE\TRIMETHOPRIM
  7. VALACYCLOVIR HYDROCHLORIDE [Concomitant]
     Active Substance: VALACYCLOVIR HYDROCHLORIDE
  8. POLARAMINE [Concomitant]
     Active Substance: DEXCHLORPHENIRAMINE MALEATE
  9. ONDANSETRON [Concomitant]
     Active Substance: ONDANSETRON
  10. APREPITANT [Concomitant]
     Active Substance: APREPITANT

REACTIONS (2)
  - Septic shock [Fatal]
  - Off label use [Unknown]

NARRATIVE: CASE EVENT DATE: 20241221
